FAERS Safety Report 7908339-X (Version None)
Quarter: 2011Q4

REPORT INFORMATION
  Report Type: 
  Country: None (occurrence: None)
  Receive Date: 20111109
  Receipt Date: 20111109
  Transmission Date: 20120403
  Serious: Yes (Death, Life-Threatening, Hospitalization, Disabling, Other)
  Sender: FDA-Public Use
  Company Number: None

PATIENT
  Age: 87 Year
  Sex: Female

DRUGS (1)
  1. DURAGESIC-100 [Suspect]

REACTIONS (11)
  - ANXIETY [None]
  - SPEECH DISORDER [None]
  - INSOMNIA [None]
  - SENSORY DISTURBANCE [None]
  - LACERATION [None]
  - HYPOPHAGIA [None]
  - INJURY [None]
  - DYSPNOEA [None]
  - AMNESIA [None]
  - CONTUSION [None]
  - OVERDOSE [None]
